FAERS Safety Report 5470435-7 (Version None)
Quarter: 2007Q3

REPORT INFORMATION
  Report Type: 
  Country: None (occurrence: None)
  Receive Date: 20070820
  Receipt Date: 20070509
  Transmission Date: 20080115
  Serious: No
  Sender: FDA-Public Use
  Company Number: WAES 0705USA01994

PATIENT
  Age: 44 Year
  Sex: Female

DRUGS (2)
  1. JANUVIA [Suspect]
     Indication: TYPE 2 DIABETES MELLITUS
     Dosage: 100 MG/DAILY/PO
     Route: 048
     Dates: start: 20070427, end: 20070508
  2. METFORMIN [Concomitant]

REACTIONS (4)
  - DRY SKIN [None]
  - EYE HAEMORRHAGE [None]
  - NASAL OEDEMA [None]
  - RASH [None]
